FAERS Safety Report 18503059 (Version 1)
Quarter: 2020Q4

REPORT INFORMATION
  Report Type: Spontaneous
  Country: GB (occurrence: GB)
  Receive Date: 20201113
  Receipt Date: 20201113
  Transmission Date: 20210114
  Serious: Yes (Other)
  Sender: FDA-Public Use
  Company Number: GB-IPSEN BIOPHARMACEUTICALS, INC.-2020-21849

PATIENT
  Age: 80 Year
  Sex: Male
  Weight: 55.1 kg

DRUGS (6)
  1. SOMATULINE AUTOGEL [Suspect]
     Active Substance: LANREOTIDE ACETATE
     Indication: CARCINOID TUMOUR OF THE SMALL BOWEL
     Dosage: DOSE NOT REPORTED
     Route: 065
     Dates: start: 201806
  2. CREON [Concomitant]
     Active Substance: PANCRELIPASE AMYLASE\PANCRELIPASE LIPASE\PANCRELIPASE PROTEASE
  3. RAMIPRIL. [Concomitant]
     Active Substance: RAMIPRIL
  4. ASPIRIN. [Concomitant]
     Active Substance: ASPIRIN
  5. METFORMIN [Concomitant]
     Active Substance: METFORMIN HYDROCHLORIDE
  6. XERMELO [Suspect]
     Active Substance: TELOTRISTAT ETHYL
     Indication: CARCINOID TUMOUR OF THE SMALL BOWEL
     Dosage: DOSE NOT REPORTED
     Route: 065

REACTIONS (5)
  - Neoplasm progression [Unknown]
  - Mitral valve incompetence [Unknown]
  - Abnormal loss of weight [Unknown]
  - Postoperative renal failure [Unknown]
  - Heart valve operation [Unknown]

NARRATIVE: CASE EVENT DATE: 201904
